FAERS Safety Report 9790177 (Version 2)
Quarter: 2014Q1

REPORT INFORMATION
  Report Type: Report from Study
  Country: US (occurrence: US)
  Receive Date: 20131231
  Receipt Date: 20140117
  Transmission Date: 20141002
  Serious: Yes (Hospitalization, Other)
  Sender: FDA-Public Use
  Company Number: US-PURDUE-USA-2013-0109846

PATIENT
  Age: 61 Year
  Sex: Female

DRUGS (1)
  1. OXY CR TAB [Suspect]
     Indication: PRODUCT USED FOR UNKNOWN INDICATION
     Dosage: 20 MG, TID
     Route: 048
     Dates: start: 20131206

REACTIONS (3)
  - Pancreatitis [Not Recovered/Not Resolved]
  - Polyp [Recovered/Resolved]
  - Pancreatic duct obstruction [Unknown]
